FAERS Safety Report 5393833-9 (Version None)
Quarter: 2007Q3

REPORT INFORMATION
  Report Type: 
  Country: None (occurrence: None)
  Receive Date: 20070719
  Receipt Date: 20070719
  Transmission Date: 20080115
  Serious: Yes (Life-Threatening)
  Sender: FDA-Public Use
  Company Number: None

PATIENT
  Age: 44 Year
  Sex: Female

DRUGS (8)
  1. INFLIXIMAB 100MG [Suspect]
     Indication: RHEUMATOID ARTHRITIS
     Dosage: 300 MG X1 OVER 2 HOURS IV
     Route: 042
     Dates: start: 20070511, end: 20070511
  2. METHOTREXATE [Concomitant]
  3. NIFEDIPINE [Concomitant]
  4. RABEPRAZOLE SODIUM [Concomitant]
  5. VALSARTAN [Concomitant]
  6. FOLATE [Concomitant]
  7. IBANDRONATE [Concomitant]
  8. CELECOXIB [Concomitant]

REACTIONS (10)
  - COUGH [None]
  - DRUG INTOLERANCE [None]
  - ERYTHEMA [None]
  - FEELING ABNORMAL [None]
  - FLUSHING [None]
  - INFUSION RELATED REACTION [None]
  - LIP SWELLING [None]
  - PRURITUS GENERALISED [None]
  - SWELLING FACE [None]
  - URTICARIA [None]
